FAERS Safety Report 6038963-3 (Version None)
Quarter: 2009Q1

REPORT INFORMATION
  Report Type: 
  Country: None (occurrence: None)
  Receive Date: 20090115
  Receipt Date: 20090109
  Transmission Date: 20090719
  Serious: Yes (Other)
  Sender: FDA-Public Use
  Company Number: US-JNJCH-2009001026

PATIENT
  Sex: Male

DRUGS (1)
  1. VISINE EYE DROPS [Suspect]
     Indication: PHYSICAL ASSAULT
     Dosage: TEXT:^HALF A BOTTLE^
     Route: 048
     Dates: start: 20080101, end: 20080101

REACTIONS (3)
  - GASTRIC DISORDER [None]
  - INCORRECT ROUTE OF DRUG ADMINISTRATION [None]
  - POISONING [None]
